FAERS Safety Report 6713439-6 (Version None)
Quarter: 2010Q2

REPORT INFORMATION
  Report Type: 
  Country: None (occurrence: None)
  Receive Date: 20100506
  Receipt Date: 20100426
  Transmission Date: 20101027
  Serious: Yes (Hospitalization)
  Sender: FDA-Public Use
  Company Number: FR-NAPPMUNDI-GBR-2010-0006263

PATIENT
  Sex: Female
  Weight: 70 kg

DRUGS (3)
  1. OXYCONTIN [Suspect]
     Indication: BACK PAIN
     Dosage: 10 MG, BID
     Route: 048
     Dates: start: 20100305, end: 20100306
  2. OXYCONTIN [Suspect]
     Dosage: 5 MG, BID
     Route: 048
     Dates: start: 20100304, end: 20100305
  3. NOVONORM [Concomitant]
     Indication: DRUG USE FOR UNKNOWN INDICATION
     Route: 065

REACTIONS (5)
  - CONFUSIONAL STATE [None]
  - CONTUSION [None]
  - FALL [None]
  - HEAD INJURY [None]
  - INJURY [None]
